FAERS Safety Report 6812395-X (Version None)
Quarter: 2010Q3

REPORT INFORMATION
  Report Type: 
  Country: None (occurrence: None)
  Receive Date: 20100701
  Receipt Date: 20100624
  Transmission Date: 20110219
  Serious: Yes (Hospitalization)
  Sender: FDA-Public Use
  Company Number: US-GENZYME-FABR-1001446

PATIENT

DRUGS (2)
  1. FABRAZYME [Suspect]
     Indication: FABRY'S DISEASE
     Dosage: 1.0 MG/KG, QOW
     Route: 042
  2. FABRAZYME [Suspect]
     Dosage: UNK
     Route: 042
     Dates: start: 20090902

REACTIONS (1)
  - COSTOCHONDRITIS [None]
